FAERS Safety Report 17840345 (Version 1)
Quarter: 2020Q2

REPORT INFORMATION
  Report Type: Spontaneous
  Country: US (occurrence: US)
  Receive Date: 20200529
  Receipt Date: 20200529
  Transmission Date: 20200714
  Serious: No
  Sender: FDA-Public Use
  Company Number: US-GLAXOSMITHKLINE-US2020AMR089457

PATIENT
  Sex: Female

DRUGS (3)
  1. GABAPENTIN. [Suspect]
     Active Substance: GABAPENTIN
     Indication: PAIN
  2. GABAPENTIN. [Suspect]
     Active Substance: GABAPENTIN
     Indication: HERPES ZOSTER
     Dosage: UNK
     Route: 065
  3. VALTREX [Suspect]
     Active Substance: VALACYCLOVIR HYDROCHLORIDE
     Indication: HERPES ZOSTER
     Dosage: UNK
     Route: 065
     Dates: start: 2020, end: 2020

REACTIONS (8)
  - Skin burning sensation [Unknown]
  - Paraesthesia [Unknown]
  - Condition aggravated [Unknown]
  - Poor quality sleep [Unknown]
  - Pain [Unknown]
  - Discomfort [Unknown]
  - Rash vesicular [Recovered/Resolved]
  - Scab [Recovered/Resolved]
